FAERS Safety Report 5193801-6 (Version None)
Quarter: 2006Q4

REPORT INFORMATION
  Report Type: 
  Country: None (occurrence: None)
  Receive Date: 20061228
  Receipt Date: 20061027
  Transmission Date: 20070319
  Serious: Yes (Other)
  Sender: FDA-Public Use
  Company Number: SE-ELI_LILLY_AND_COMPANY-SE200610004849

PATIENT
  Age: 57 Year
  Sex: Female

DRUGS (1)
  1. EVISTA [Suspect]
     Indication: PREMATURE MENOPAUSE
     Dosage: UNK, UNKNOWN
     Route: 048

REACTIONS (1)
  - UTERINE CANCER [None]
